FAERS Safety Report 7564252-1 (Version None)
Quarter: 2011Q2

REPORT INFORMATION
  Report Type: 
  Country: None (occurrence: None)
  Receive Date: 20110622
  Receipt Date: 20110608
  Transmission Date: 20111010
  Serious: Yes (Life-Threatening, Other)
  Sender: FDA-Public Use
  Company Number: PHHY2011US50794

PATIENT
  Sex: Male

DRUGS (1)
  1. EXJADE [Suspect]
     Dosage: 1500 MG, QD ((500 MG, 3 TABLETS OD))
     Route: 048

REACTIONS (4)
  - KIDNEY INFECTION [None]
  - PNEUMONIA [None]
  - BLOOD COUNT ABNORMAL [None]
  - NASOPHARYNGITIS [None]
